FAERS Safety Report 24544895 (Version 1)
Quarter: 2024Q4

REPORT INFORMATION
  Report Type: Report from Study
  Country: CO (occurrence: CO)
  Receive Date: 20241024
  Receipt Date: 20241024
  Transmission Date: 20250115
  Serious: Yes (Other)
  Sender: RECORDATI
  Company Number: CO-ORPHANEU-2023007647

PATIENT

DRUGS (18)
  1. ISTURISA [Suspect]
     Active Substance: OSILODROSTAT PHOSPHATE
     Indication: Pituitary-dependent Cushing^s syndrome
     Dosage: 4 MILLIGRAM, Q12H
     Route: 048
     Dates: start: 20230719, end: 2023
  2. ISTURISA [Suspect]
     Active Substance: OSILODROSTAT PHOSPHATE
     Dosage: 1 MILLIGRAM, Q12H
     Route: 048
     Dates: start: 2023, end: 20230919
  3. ISTURISA [Suspect]
     Active Substance: OSILODROSTAT PHOSPHATE
     Dosage: 5 MG (3 TABLETS OF 1MG AM AND 2 TABLETS OF 1MG PM)
     Route: 048
     Dates: start: 20230920, end: 20231104
  4. ISTURISA [Suspect]
     Active Substance: OSILODROSTAT PHOSPHATE
     Dosage: 1 MILLIGRAM, Q8H (EVERY 8 HOURS)
     Route: 048
     Dates: start: 20230920, end: 20240320
  5. ISTURISA [Suspect]
     Active Substance: OSILODROSTAT PHOSPHATE
     Dosage: 1 MG TABLET DAILY
     Route: 048
     Dates: start: 20240507, end: 202405
  6. ISTURISA [Suspect]
     Active Substance: OSILODROSTAT PHOSPHATE
     Dosage: 1 MG, BID (1MG IN THE MORNING AND 1MG IN THE EVENING)
     Route: 048
     Dates: start: 202405, end: 2024
  7. ISTURISA [Suspect]
     Active Substance: OSILODROSTAT PHOSPHATE
     Dosage: 1 MILLIGRAM, Q8H (EVERY 8 HOURS)
     Route: 048
     Dates: start: 2024
  8. LEVOTHYROXINE [Concomitant]
     Active Substance: LEVOTHYROXINE
     Indication: Hypothyroidism
     Dosage: 120 MCG/24H
  9. LEVOTHYROXINE [Concomitant]
     Active Substance: LEVOTHYROXINE
     Dosage: 112 MICROGRAM, QD (EVERY 24 HOURS)
  10. LEVOTHYROXINE [Concomitant]
     Active Substance: LEVOTHYROXINE
     Dosage: 100 MICROGRAM, QD (EVERY 24 HOURS)
  11. SEMAGLUTIDE [Concomitant]
     Active Substance: SEMAGLUTIDE
     Indication: Diabetes mellitus
     Dosage: 25 MG, 1 UNIT, QW
  12. SEMAGLUTIDE [Concomitant]
     Active Substance: SEMAGLUTIDE
     Dosage: 1 MG, QW (PEN 1.34 MG/ML)
  13. EMPAGLIFLOZIN [Concomitant]
     Active Substance: EMPAGLIFLOZIN
     Indication: Diabetes mellitus
     Dosage: 1 DOSAGE FORM, Q12H
  14. EMPAGLIFLOZIN [Concomitant]
     Active Substance: EMPAGLIFLOZIN
     Dosage: 25 MG DAILY (EVERY 24 HOURS)
  15. FENOFIBRIC ACID;ROSUVASTATIN [Concomitant]
     Indication: Dyslipidaemia
     Dosage: 1 DOSAGE FORM, QD (20 MG/135 MG DAILY (1 CAPSULE EVERY 24 HOURS)
  16. INSULIN GLARGINE [Concomitant]
     Active Substance: INSULIN GLARGINE
     Indication: Diabetes mellitus
     Dosage: 28 IU, QD (MORNING), PEN, 10/IU/ML,
  17. IBANDRONIC ACID [Concomitant]
     Active Substance: IBANDRONIC ACID
     Indication: Osteoporosis
     Dosage: 150 MG DAILY (150 MG STRENGTH)
  18. DENOSUMAB [Concomitant]
     Active Substance: DENOSUMAB
     Indication: Osteoporosis
     Dosage: SYRINGE 60 MG SC EVERY 6 MONTHS
     Route: 058

REACTIONS (10)
  - Glucocorticoid deficiency [Recovering/Resolving]
  - Glucocorticoid deficiency [Not Recovered/Not Resolved]
  - Acne pustular [Not Recovered/Not Resolved]
  - Myalgia [Not Recovered/Not Resolved]
  - Lethargy [Not Recovered/Not Resolved]
  - Headache [Not Recovered/Not Resolved]
  - Abdominal pain [Not Recovered/Not Resolved]
  - Therapeutic product effect variable [Recovered/Resolved]
  - Therapy cessation [Recovered/Resolved]
  - Off label use [Recovered/Resolved]

NARRATIVE: CASE EVENT DATE: 20230920
